FAERS Safety Report 5490478-7 (Version None)
Quarter: 2007Q4

REPORT INFORMATION
  Report Type: 
  Country: None (occurrence: None)
  Receive Date: 20071017
  Receipt Date: 20071017
  Transmission Date: 20080405
  Serious: No
  Sender: FDA-Public Use
  Company Number: None

PATIENT
  Sex: Female
  Weight: 67.586 kg

DRUGS (2)
  1. METOPROLOL TARTRATE [Suspect]
     Indication: BLOOD PRESSURE DECREASED
     Dosage: 1 TABLET PER DAY PO
     Route: 048
     Dates: start: 20071001, end: 20071016
  2. METOPROLOL TARTRATE [Suspect]
     Indication: HEART RATE IRREGULAR
     Dosage: 1 TABLET PER DAY PO
     Route: 048
     Dates: start: 20071001, end: 20071016

REACTIONS (7)
  - ANXIETY [None]
  - DISORIENTATION [None]
  - DIZZINESS [None]
  - FATIGUE [None]
  - NAUSEA [None]
  - PHOTOSENSITIVITY REACTION [None]
  - VENTRICULAR TACHYCARDIA [None]
